FAERS Safety Report 7397994-1 (Version None)
Quarter: 2011Q2

REPORT INFORMATION
  Report Type: 
  Country: None (occurrence: None)
  Receive Date: 20110406
  Receipt Date: 20110215
  Transmission Date: 20111010
  Serious: Yes (Hospitalization, Other)
  Sender: FDA-Public Use
  Company Number: US-BAYER-201037963NA

PATIENT
  Sex: Female
  Weight: 81.633 kg

DRUGS (8)
  1. ANTIBIOTICS [Concomitant]
  2. SYMBICORT [Concomitant]
     Dosage: UNK
     Dates: start: 20070101, end: 20090101
  3. HYDROXYZINE HCL [Concomitant]
     Dosage: 10 MG, UNK
  4. YAZ [Suspect]
     Indication: MENORRHAGIA
     Dosage: 1 TABLET
     Route: 048
     Dates: start: 20070621, end: 20071005
  5. RANITIDINE [Concomitant]
     Dosage: 150 MG, UNK
  6. ALBUTEROL INHALER [Concomitant]
     Dosage: 90 MCG
  7. YAZ [Suspect]
     Indication: DYSFUNCTIONAL UTERINE BLEEDING
  8. NEXIUM [Concomitant]
     Dosage: 20 MG, UNK

REACTIONS (3)
  - PULMONARY EMBOLISM [None]
  - ACUTE CORONARY SYNDROME [None]
  - HYPERTENSION [None]
